FAERS Safety Report 6424915-8 (Version None)
Quarter: 2009Q4

REPORT INFORMATION
  Report Type: 
  Country: None (occurrence: None)
  Receive Date: 20091029
  Receipt Date: 20091021
  Transmission Date: 20100525
  Serious: Yes (Life-Threatening, Hospitalization)
  Sender: FDA-Public Use
  Company Number: 2009US003712

PATIENT
  Age: 33 Year
  Sex: Male

DRUGS (8)
  1. LEXISCAN [Suspect]
     Indication: SCAN MYOCARDIAL PERFUSION
     Dosage: 0.4 MG, TOTAL DOSE IV BOLUS
     Route: 040
     Dates: start: 20091005, end: 20091005
  2. CARDIZEM [Concomitant]
  3. ZOCOR [Concomitant]
  4. ATIVAN [Concomitant]
  5. HYDROXYZINE [Concomitant]
  6. PAXIL [Concomitant]
  7. DILAUDID [Concomitant]
  8. ALBUTEROL (SALBUTAMOL SULFATE) [Concomitant]

REACTIONS (8)
  - ANGIOEDEMA [None]
  - BRONCHOSPASM [None]
  - DYSPNOEA [None]
  - LOSS OF CONSCIOUSNESS [None]
  - NO THERAPEUTIC RESPONSE [None]
  - OROPHARYNGEAL PAIN [None]
  - PRURITUS [None]
  - RESUSCITATION [None]
